FAERS Safety Report 7119143-7 (Version None)
Quarter: 2010Q4

REPORT INFORMATION
  Report Type: 
  Country: None (occurrence: None)
  Receive Date: 20101123
  Receipt Date: 20100624
  Transmission Date: 20110411
  Serious: No
  Sender: FDA-Public Use
  Company Number: US-MYLANLABS-2010S1009053

PATIENT
  Age: 91 Year
  Sex: Female
  Weight: 52.16 kg

DRUGS (9)
  1. AMLODIPINE BESYLATE [Suspect]
     Indication: HYPERTENSION
     Route: 048
     Dates: start: 20090101, end: 20100101
  2. COZAAR [Concomitant]
     Indication: HYPERTENSION
     Dates: start: 20080101
  3. CARVEDILOL [Concomitant]
     Indication: HYPERTENSION
     Dates: start: 20080101
  4. LEVOTHYROXINE SODIUM [Concomitant]
     Indication: HYPOTHYROIDISM
     Dates: start: 20080101
  5. POTASSIUM CHLORIDE [Concomitant]
     Dates: start: 20080101
  6. CITRACAL + D /01438101/ [Concomitant]
     Indication: OSTEOPOROSIS
  7. VITAMIN D [Concomitant]
     Indication: OSTEOPOROSIS
  8. LASIX [Concomitant]
     Indication: FLUID RETENTION
     Dates: start: 20080101
  9. TEKTURNA [Concomitant]

REACTIONS (1)
  - SENSITIVITY OF TEETH [None]
